FAERS Safety Report 13054479 (Version 2)
Quarter: 2017Q1

REPORT INFORMATION
  Report Type: Spontaneous
  Country: FR (occurrence: FR)
  Receive Date: 20161222
  Receipt Date: 20170109
  Transmission Date: 20170428
  Serious: Yes (Hospitalization)
  Sender: FDA-Public Use
  Company Number: FR-PFIZER INC-2016585874

PATIENT
  Age: 91 Year
  Sex: Female

DRUGS (8)
  1. ATARAX [Concomitant]
     Active Substance: HYDROXYZINE HYDROCHLORIDE
     Dosage: 1 DF, 1X/DAY 0-0-1
     Route: 048
     Dates: end: 20160906
  2. BROMAZEPAM [Concomitant]
     Active Substance: BROMAZEPAM
     Dosage: 3 MG, 1X/DAY 0-0-1/2 DF
     Route: 048
     Dates: end: 20160906
  3. SPECIAFOLDINE [Concomitant]
     Active Substance: FOLIC ACID
     Dosage: UNK
     Dates: start: 20160816
  4. EFFEXOR LP [Suspect]
     Active Substance: VENLAFAXINE HYDROCHLORIDE
     Dosage: UNK
     Route: 048
     Dates: start: 20160830, end: 20160906
  5. ESOMEPRAZOLE [Concomitant]
     Active Substance: ESOMEPRAZOLE
     Dosage: 20 MG, UNK
     Route: 048
     Dates: end: 20160906
  6. DOLIPRANE [Concomitant]
     Active Substance: ACETAMINOPHEN
     Dosage: 1 G, 1X/DAY 0-0-1
     Route: 048
     Dates: end: 20160906
  7. DEBRIDAT /00465201/ [Concomitant]
     Active Substance: TRIMEBUTINE MALEATE
     Dosage: 100 UNKNOWN UNIT 3X/DAY 1-1-1
     Route: 048
     Dates: end: 20160906
  8. VOGALENE [Concomitant]
     Active Substance: METOPIMAZINE
     Dosage: UNK, AS NEEDED
     Route: 048
     Dates: end: 20160906

REACTIONS (6)
  - Pollakiuria [Unknown]
  - Gastrointestinal motility disorder [Unknown]
  - Condition aggravated [Recovered/Resolved]
  - Anaemia [Unknown]
  - Inappropriate antidiuretic hormone secretion [Unknown]
  - Hyponatraemia [Recovered/Resolved]

NARRATIVE: CASE EVENT DATE: 20160906
